FAERS Safety Report 13912197 (Version 1)
Quarter: 2017Q3

REPORT INFORMATION
  Report Type: Spontaneous
  Country: US (occurrence: US)
  Receive Date: 20170828
  Receipt Date: 20170828
  Transmission Date: 20171127
  Serious: No
  Sender: FDA-Public Use
  Company Number: US-ROCHE-1141567

PATIENT
  Sex: Female
  Weight: 42 kg

DRUGS (3)
  1. NUTROPIN [Suspect]
     Active Substance: SOMATROPIN
     Route: 058
  2. CLONIDINE. [Concomitant]
     Active Substance: CLONIDINE
  3. NUTROPIN [Suspect]
     Active Substance: SOMATROPIN
     Indication: DWARFISM
     Route: 050
     Dates: start: 19970124

REACTIONS (5)
  - Drug dose omission [Unknown]
  - Premenarche [Not Recovered/Not Resolved]
  - Pneumonia [Unknown]
  - Constipation [Not Recovered/Not Resolved]
  - Vaginal discharge [Not Recovered/Not Resolved]
